FAERS Safety Report 6770097-2 (Version None)
Quarter: 2010Q2

REPORT INFORMATION
  Report Type: 
  Country: None (occurrence: None)
  Receive Date: 20100615
  Receipt Date: 20100610
  Transmission Date: 20101027
  Serious: Yes (Other)
  Sender: FDA-Public Use
  Company Number: US-B.I. PHARMACEUTICALS,INC./RIDGEFIELD-2010-BP-06673BP

PATIENT
  Sex: Female

DRUGS (12)
  1. CATAPRES-TTS-1 [Suspect]
     Indication: HYPERTENSION
     Dosage: 0.2 MG
     Route: 061
  2. KERLONE [Concomitant]
     Indication: HYPERTENSION
  3. CLONIDINE [Concomitant]
     Indication: HYPERTENSION
     Dosage: 0.1 MG
  4. REMERON [Concomitant]
     Indication: INSOMNIA
     Dosage: 15 MG
  5. TRAZODONE HCL [Concomitant]
     Indication: INSOMNIA
     Dosage: 100 MG
  6. RESTORIL [Concomitant]
     Indication: INSOMNIA
  7. MIRALAX [Concomitant]
     Indication: CONSTIPATION
  8. KRISTALOSE [Concomitant]
     Indication: CONSTIPATION
     Dosage: 20 MG
  9. CELEBREX [Concomitant]
     Dosage: 200 MG
  10. FIORICET [Concomitant]
     Indication: HEADACHE
  11. PREVACID [Concomitant]
     Indication: IMPAIRED GASTRIC EMPTYING
  12. DARVOCET [Concomitant]
     Indication: HEADACHE

REACTIONS (4)
  - APPLICATION SITE ERYTHEMA [None]
  - APPLICATION SITE PRURITUS [None]
  - BLOOD PRESSURE INCREASED [None]
  - VIRAL INFECTION [None]
